FAERS Safety Report 5480087-8 (Version None)
Quarter: 2007Q4

REPORT INFORMATION
  Report Type: 
  Country: None (occurrence: None)
  Receive Date: 20071008
  Receipt Date: 20071002
  Transmission Date: 20080405
  Serious: Yes (Other)
  Sender: FDA-Public Use
  Company Number: US-PFIZER INC-2007082739

PATIENT
  Sex: Female
  Weight: 67.272 kg

DRUGS (4)
  1. DETROL LA [Suspect]
     Indication: MICTURITION URGENCY
     Dosage: TEXT:4MG DAILY EVERY DAY TDD:4MG
  2. OXYBUTYNIN CHLORIDE [Suspect]
     Dosage: TEXT:5MG
  3. HUMIRA [Concomitant]
  4. ALL OTHER THERAPEUTIC PRODUCTS [Concomitant]

REACTIONS (4)
  - PAIN [None]
  - ROAD TRAFFIC ACCIDENT [None]
  - THROMBOSIS [None]
  - WEIGHT INCREASED [None]
